FAERS Safety Report 5998674-7 (Version None)
Quarter: 2008Q4

REPORT INFORMATION
  Report Type: 
  Country: None (occurrence: None)
  Receive Date: 20081213
  Receipt Date: 20080716
  Transmission Date: 20090506
  Serious: No
  Sender: FDA-Public Use
  Company Number: US-AMGEN-KDL291869

PATIENT
  Sex: Male
  Weight: 81.3 kg

DRUGS (13)
  1. ENBREL [Suspect]
     Indication: RHEUMATOID ARTHRITIS
     Route: 058
     Dates: start: 20021002
  2. METHOTREXATE [Concomitant]
     Route: 048
     Dates: start: 20041025
  3. STOOL SOFTENER [Concomitant]
  4. LEUCOVORIN CALCIUM [Concomitant]
  5. FOLIC ACID [Concomitant]
  6. VOLTAREN [Concomitant]
  7. MORPHINE [Concomitant]
  8. MULTI-VITAMINS [Concomitant]
  9. LIDODERM PATCH (ENDO PHARMACEUTICALS) [Concomitant]
  10. NEXIUM [Concomitant]
  11. TRIAMCINOLONE [Concomitant]
  12. OXYCODONE HCL [Concomitant]
  13. TYLENOL W/ CODEINE [Concomitant]

REACTIONS (4)
  - DIZZINESS [None]
  - INJECTION SITE INDURATION [None]
  - INJECTION SITE PAIN [None]
  - NASOPHARYNGITIS [None]
